FAERS Safety Report 4559356-1 (Version None)
Quarter: 2005Q1

REPORT INFORMATION
  Report Type: 
  Country: None (occurrence: None)
  Receive Date: 20050124
  Receipt Date: 20041216
  Transmission Date: 20050727
  Serious: Yes (Life-Threatening, Hospitalization, Disabling)
  Sender: FDA-Public Use
  Company Number: US-MERCK-0412USA02091

PATIENT
  Age: 72 Year
  Sex: Male
  Weight: 79 kg

DRUGS (21)
  1. CANCIDAS [Suspect]
     Indication: PERITONEAL INFECTION
     Route: 042
     Dates: start: 20041123, end: 20041213
  2. CANCIDAS [Suspect]
     Route: 042
     Dates: start: 20041122, end: 20041122
  3. CANCIDAS [Suspect]
     Indication: PYREXIA
     Route: 042
     Dates: start: 20041123, end: 20041213
  4. CANCIDAS [Suspect]
     Route: 042
     Dates: start: 20041122, end: 20041122
  5. LASIX [Concomitant]
     Route: 065
  6. HEPARIN [Concomitant]
     Route: 065
  7. PRIMAXIN [Concomitant]
     Route: 065
  8. ZOSYN [Concomitant]
     Route: 065
  9. [THERAPY UNSPECIFIED] [Concomitant]
     Route: 065
  10. VANCOMYCIN [Concomitant]
     Route: 065
  11. ALBUTEROL AND IPRATROPIUM BROMIDE [Concomitant]
     Route: 065
  12. ALBUTEROL SULFATE [Concomitant]
     Route: 065
  13. ASPIRIN [Concomitant]
     Route: 065
  14. FENTANYL CITRATE [Concomitant]
     Route: 065
  15. INSULIN [Concomitant]
     Route: 065
  16. LEVOTHYROXINE SODIUM [Concomitant]
     Route: 065
  17. MORPHINE SULFATE [Concomitant]
     Route: 065
  18. LORAZEPAM [Concomitant]
     Route: 065
  19. PANTOPRAZOLE SODIUM [Concomitant]
     Route: 065
  20. ZOLPIDEM TARTRATE [Concomitant]
     Route: 065
  21. BUPIVACAINE HYDROCHLORIDE [Concomitant]
     Route: 065

REACTIONS (2)
  - DEEP VEIN THROMBOSIS [None]
  - THROMBOCYTOPENIA [None]
